FAERS Safety Report 9309714 (Version 1)
Quarter: 2013Q2

REPORT INFORMATION
  Report Type: Spontaneous
  Country: US (occurrence: US)
  Receive Date: 20130525
  Receipt Date: 20130525
  Transmission Date: 20140414
  Serious: Yes (Other)
  Sender: FDA-Public Use
  Company Number: US-BRISTOL-MYERS SQUIBB COMPANY-18570499

PATIENT
  Sex: 0

DRUGS (8)
  1. BYDUREON [Suspect]
     Indication: TYPE 2 DIABETES MELLITUS
     Route: 058
     Dates: start: 20120223, end: 20121108
  2. LANTUS [Concomitant]
  3. HUMALOG [Concomitant]
  4. BENICAR [Concomitant]
  5. TRICOR [Concomitant]
  6. PRAVACHOL [Concomitant]
  7. PLAVIX [Concomitant]
  8. ZANTAC [Concomitant]

REACTIONS (2)
  - Pancreatitis acute [Recovering/Resolving]
  - Off label use [Recovered/Resolved]
